FAERS Safety Report 6531291-9 (Version None)
Quarter: 2010Q1

REPORT INFORMATION
  Report Type: 
  Country: None (occurrence: None)
  Receive Date: 20100108
  Receipt Date: 20091231
  Transmission Date: 20100710
  Serious: Yes (Hospitalization)
  Sender: FDA-Public Use
  Company Number: CA-SANOFI-AVENTIS-2009SA011919

PATIENT
  Age: 70 Year
  Sex: Male
  Weight: 80 kg

DRUGS (11)
  1. DOCETAXEL [Suspect]
     Indication: PROSTATE CANCER
     Route: 042
     Dates: start: 20091201, end: 20091201
  2. ELIGARD [Suspect]
     Indication: PROSTATE CANCER
     Route: 058
     Dates: start: 20091027, end: 20091027
  3. CASODEX [Suspect]
     Indication: PROSTATE CANCER
     Route: 048
     Dates: start: 20091027
  4. ASPIRIN [Concomitant]
     Route: 048
  5. VASOTEC [Concomitant]
     Route: 048
  6. COUMADIN [Concomitant]
  7. FOLIC ACID [Concomitant]
  8. VITAMIN B-12 [Concomitant]
     Route: 048
  9. ROSUVASTATIN [Concomitant]
     Route: 048
  10. NOVO-CLINDAMYCIN [Concomitant]
  11. DEXAMETHASONE [Concomitant]

REACTIONS (1)
  - FEBRILE NEUTROPENIA [None]
